FAERS Safety Report 8347735-6 (Version None)
Quarter: 2012Q2

REPORT INFORMATION
  Report Type: 
  Country: None (occurrence: None)
  Receive Date: 20120509
  Receipt Date: 20120501
  Transmission Date: 20120825
  Serious: Yes (Other)
  Sender: FDA-Public Use
  Company Number: MY-ALLERGAN-1206243US

PATIENT
  Age: 3 Month
  Sex: Male

DRUGS (8)
  1. GENTAMICIN/BECLOMETASONE [Concomitant]
  2. FERRIC AMMONIUM CITRATE [Concomitant]
  3. METOCLOPRAMIDE [Concomitant]
  4. FOLIC ACID [Concomitant]
  5. MULTIVITAMIN                       /00097801/ [Concomitant]
  6. PRED FORTE [Suspect]
     Indication: RETINOPATHY
     Dosage: 4 GTT, UNK
     Route: 047
  7. OMEPRAZOLE [Concomitant]
  8. NEVANAC [Concomitant]
     Indication: RETINOPATHY
     Dosage: 3 GTT, QD
     Route: 047

REACTIONS (1)
  - CORNEAL OPACITY [None]
